FAERS Safety Report 4423637-2 (Version None)
Quarter: 2004Q3

REPORT INFORMATION
  Report Type: 
  Country: None (occurrence: None)
  Receive Date: 20040719
  Receipt Date: 20040319
  Transmission Date: 20050211
  Serious: Yes (Hospitalization)
  Sender: FDA-Public Use
  Company Number: A03200400908

PATIENT
  Age: 73 Year
  Sex: Male

DRUGS (4)
  1. UROXATRAL [Suspect]
     Indication: BENIGN PROSTATIC HYPERPLASIA
     Dosage: 10 MG OD; ORAL
     Route: 048
     Dates: start: 20040312, end: 20040312
  2. UROXATRAL [Suspect]
     Indication: RESIDUAL URINE VOLUME
     Dosage: 10 MG OD; ORAL
     Route: 048
     Dates: start: 20040312, end: 20040312
  3. CIPROFLOXACIN [Concomitant]
  4. ... [Concomitant]

REACTIONS (2)
  - LOSS OF CONSCIOUSNESS [None]
  - RIB FRACTURE [None]
